FAERS Safety Report 17693457 (Version 1)
Quarter: 2020Q2

REPORT INFORMATION
  Report Type: Spontaneous
  Country: US (occurrence: US)
  Receive Date: 20200422
  Receipt Date: 20200422
  Transmission Date: 20200714
  Serious: Yes (Hospitalization)
  Sender: FDA-Public Use
  Company Number: None

PATIENT
  Sex: Female

DRUGS (21)
  1. HUMIRA [Suspect]
     Active Substance: ADALIMUMAB
     Indication: RHEUMATOID ARTHRITIS
     Dosage: ?          OTHER FREQUENCY:EVERY OTHER WEEK;?
     Route: 058
     Dates: start: 20181206
  2. CLARITIN [Concomitant]
     Active Substance: LORATADINE
  3. GABAPENTIN. [Concomitant]
     Active Substance: GABAPENTIN
  4. TIZANIDINE. [Concomitant]
     Active Substance: TIZANIDINE
  5. ATORVASTATIN [Concomitant]
     Active Substance: ATORVASTATIN
  6. BENADRYL [Concomitant]
     Active Substance: DIPHENHYDRAMINE HYDROCHLORIDE
  7. BUPROPN [Concomitant]
  8. PANTOPRAZOLE [Concomitant]
     Active Substance: PANTOPRAZOLE
  9. PREGABALIN. [Concomitant]
     Active Substance: PREGABALIN
  10. MONTELUKAST [Concomitant]
     Active Substance: MONTELUKAST SODIUM
  11. ESCITALOPRAM [Concomitant]
     Active Substance: ESCITALOPRAM OXALATE
  12. GLIPIZIDE. [Concomitant]
     Active Substance: GLIPIZIDE
  13. MUCINEX [Concomitant]
     Active Substance: GUAIFENESIN
  14. TORSEMIDE. [Concomitant]
     Active Substance: TORSEMIDE
  15. VICTOZA [Concomitant]
     Active Substance: LIRAGLUTIDE
  16. ADVAIR HFA [Concomitant]
     Active Substance: FLUTICASONE PROPIONATE\SALMETEROL XINAFOATE
  17. ALLOPURINOL. [Concomitant]
     Active Substance: ALLOPURINOL
  18. CARVEDILOL. [Concomitant]
     Active Substance: CARVEDILOL
  19. HYDRALAZINE [Concomitant]
     Active Substance: HYDRALAZINE HYDROCHLORIDE
  20. PREDNISONE. [Concomitant]
     Active Substance: PREDNISONE
  21. SPIRIVA [Concomitant]
     Active Substance: TIOTROPIUM BROMIDE MONOHYDRATE

REACTIONS (2)
  - Pneumonia [None]
  - Interstitial lung disease [None]
